FAERS Safety Report 25647092 (Version 1)
Quarter: 2025Q3

REPORT INFORMATION
  Report Type: Report from Study
  Country: CN (occurrence: CN)
  Receive Date: 20250806
  Receipt Date: 20250806
  Transmission Date: 20251020
  Serious: Yes (Death)
  Sender: ROCHE
  Company Number: CN-ROCHE-10000354748

PATIENT
  Age: 79 Year
  Sex: Male

DRUGS (2)
  1. POLIVY [Suspect]
     Active Substance: POLATUZUMAB VEDOTIN-PIIQ
     Indication: Diffuse large B-cell lymphoma
     Route: 042
     Dates: start: 20250410
  2. RITUXIMAB [Suspect]
     Active Substance: RITUXIMAB
     Indication: Diffuse large B-cell lymphoma
     Route: 042
     Dates: start: 20250410

REACTIONS (2)
  - Disease progression [Fatal]
  - Drug ineffective [Unknown]
